FAERS Safety Report 11087329 (Version 2)
Quarter: 2015Q2

REPORT INFORMATION
  Report Type: Spontaneous
  Country: US (occurrence: US)
  Receive Date: 20150504
  Receipt Date: 20150508
  Transmission Date: 20150821
  Serious: No
  Sender: FDA-Public Use
  Company Number: US-BIOGENIDEC-2015BI057466

PATIENT
  Age: 40 Year
  Sex: Female
  Weight: 49 kg

DRUGS (1)
  1. TECFIDERA [Suspect]
     Active Substance: DIMETHYL FUMARATE
     Indication: MULTIPLE SCLEROSIS
     Route: 048
     Dates: start: 20150403

REACTIONS (9)
  - Nausea [Not Recovered/Not Resolved]
  - Vomiting [Not Recovered/Not Resolved]
  - Medical device change [Recovered/Resolved]
  - Gastric perforation [Not Recovered/Not Resolved]
  - General symptom [Unknown]
  - Melaena [Not Recovered/Not Resolved]
  - Abnormal loss of weight [Unknown]
  - Diarrhoea haemorrhagic [Not Recovered/Not Resolved]
  - Frustration [Unknown]

NARRATIVE: CASE EVENT DATE: 201504
